FAERS Safety Report 4356439-6 (Version None)
Quarter: 2004Q2

REPORT INFORMATION
  Report Type: 
  Country: None (occurrence: None)
  Receive Date: 20040512
  Receipt Date: 20031030
  Transmission Date: 20050107
  Serious: No
  Sender: FDA-Public Use
  Company Number: US-GLAXOSMITHKLINE-A0432290A

PATIENT
  Age: 40 Year
  Sex: Female

DRUGS (2)
  1. RELAFEN [Suspect]
     Indication: RHEUMATOID ARTHRITIS
     Dosage: 500MG TWICE PER DAY
     Route: 048
     Dates: start: 20030830, end: 20031012
  2. ACCOLATE [Concomitant]

REACTIONS (1)
  - ALOPECIA [None]
